FAERS Safety Report 5204962-4 (Version None)
Quarter: 2007Q1

REPORT INFORMATION
  Report Type: 
  Country: None (occurrence: None)
  Receive Date: 20070110
  Receipt Date: 20060918
  Transmission Date: 20070707
  Serious: No
  Sender: FDA-Public Use
  Company Number: US-BRISTOL-MYERS SQUIBB COMPANY-13512090

PATIENT
  Age: 65 Year
  Sex: Female
  Weight: 82 kg

DRUGS (6)
  1. ABILIFY [Suspect]
     Indication: BIPOLAR II DISORDER
     Route: 048
     Dates: start: 20060914
  2. ELAVIL [Concomitant]
  3. ESTRACE [Concomitant]
  4. PROZAC [Concomitant]
  5. ELMIRON [Concomitant]
  6. NEURONTIN [Concomitant]

REACTIONS (3)
  - HALLUCINATION, AUDITORY [None]
  - PARANOIA [None]
  - RESTLESS LEGS SYNDROME [None]
